FAERS Safety Report 15339502 (Version 1)
Quarter: 2018Q4

REPORT INFORMATION
  Report Type: Spontaneous
  Country: FR (occurrence: FR)
  Receive Date: 20180831
  Receipt Date: 20180831
  Transmission Date: 20190204
  Serious: Yes (Other)
  Sender: FDA-Public Use
  Company Number: FR-MYLANLABS-2018M1064614

PATIENT
  Sex: Female

DRUGS (2)
  1. GLICLAZIDE MYLAN PHARMA 60 MG, COMPRIM? ? LIB?RATION MODIFI?E [Suspect]
     Active Substance: GLICLAZIDE
     Indication: PRODUCT USED FOR UNKNOWN INDICATION
     Dosage: UNK
     Dates: start: 2018
  2. METFORMIN [Suspect]
     Active Substance: METFORMIN HYDROCHLORIDE
     Indication: PRODUCT USED FOR UNKNOWN INDICATION
     Dosage: UNK
     Dates: start: 2018

REACTIONS (3)
  - Rash pruritic [Recovering/Resolving]
  - Liver injury [Unknown]
  - Weight increased [Unknown]

NARRATIVE: CASE EVENT DATE: 2018
